FAERS Safety Report 22149361 (Version 3)
Quarter: 2023Q4

REPORT INFORMATION
  Report Type: Report from Study
  Country: CA (occurrence: CA)
  Receive Date: 20230329
  Receipt Date: 20231207
  Transmission Date: 20240110
  Serious: Yes (Other)
  Sender: FDA-Public Use
  Company Number: CA-CELLTRION INC.-2023CA006162

PATIENT

DRUGS (20)
  1. RITUXIMAB [Suspect]
     Active Substance: RITUXIMAB
     Indication: Rheumatoid arthritis
     Dosage: 1000.0 MILLIGRAM, 1 EVERY 15 DAYS
     Route: 042
  2. ACTEMRA [Suspect]
     Active Substance: TOCILIZUMAB
     Indication: Rheumatoid arthritis
     Dosage: 576.0 MILLIGRAM, 1 EVERY 4 WEEKS
     Route: 042
  3. ACTEMRA [Suspect]
     Active Substance: TOCILIZUMAB
     Indication: Rheumatoid arthritis
     Dosage: 596.0 MG, 1 EVERY 4 WEEKS
     Route: 042
  4. ACTEMRA [Suspect]
     Active Substance: TOCILIZUMAB
     Dosage: 607.0 MG, 1 EVERY 4 WEEKS
     Route: 042
  5. ACTEMRA [Suspect]
     Active Substance: TOCILIZUMAB
     Dosage: 628.0 MG, 1 EVERY 4 WEEKS
     Route: 042
  6. ACTEMRA [Suspect]
     Active Substance: TOCILIZUMAB
     Dosage: 625.0 MG, 1 EVERY 4 WEEKS
     Route: 042
  7. PREDNISONE [Suspect]
     Active Substance: PREDNISONE
     Indication: Product used for unknown indication
     Dosage: 5 MILLIGRAM, 1 EVERY 1 DAYS
     Route: 065
  8. BENADRYL [Concomitant]
     Active Substance: DIPHENHYDRAMINE HYDROCHLORIDE
     Indication: Premedication
     Dosage: 50 MILLIGRAM
     Route: 048
  9. CALCIUM CARBONATE [Concomitant]
     Active Substance: CALCIUM CARBONATE
  10. CLOBAZAM [Concomitant]
     Active Substance: CLOBAZAM
  11. EPINEPHRINE [Concomitant]
     Active Substance: EPINEPHRINE
  12. IRON [Concomitant]
     Active Substance: IRON
  13. METHYLPREDNISOLONE SODIUM SUCCINATE [Concomitant]
     Active Substance: METHYLPREDNISOLONE SODIUM SUCCINATE
     Indication: Premedication
     Dosage: 100.0 MILLIGRAM
     Route: 042
  14. NAPROXEN [Concomitant]
     Active Substance: NAPROXEN
  15. DOCONEXENT\ICOSAPENT [Concomitant]
     Active Substance: DOCONEXENT\ICOSAPENT
  16. PANTOPRAZOLE [Concomitant]
     Active Substance: PANTOPRAZOLE
  17. RISEDRONATE SODIUM [Concomitant]
     Active Substance: RISEDRONATE SODIUM
  18. TYLENOL [Concomitant]
     Active Substance: ACETAMINOPHEN
     Indication: Premedication
     Dosage: 650 MILLIGRAM
     Route: 048
  19. VENTOLIN [Concomitant]
     Active Substance: ALBUTEROL SULFATE
  20. VITAMIN D3 [Concomitant]
     Active Substance: CHOLECALCIFEROL

REACTIONS (27)
  - Anaemia [Recovering/Resolving]
  - Breath sounds abnormal [Recovering/Resolving]
  - Chest discomfort [Recovering/Resolving]
  - Contusion [Recovering/Resolving]
  - Cyst [Recovering/Resolving]
  - Dyspnoea exertional [Recovering/Resolving]
  - Fall [Recovering/Resolving]
  - Fracture [Recovering/Resolving]
  - Hepatic steatosis [Recovering/Resolving]
  - Hepatojugular reflux [Recovering/Resolving]
  - Ill-defined disorder [Recovering/Resolving]
  - Lipohypertrophy [Recovering/Resolving]
  - Protein urine present [Recovering/Resolving]
  - Rales [Recovering/Resolving]
  - Skin discolouration [Recovering/Resolving]
  - Skin hypopigmentation [Recovering/Resolving]
  - Venous pressure jugular increased [Recovering/Resolving]
  - Weight decreased [Recovering/Resolving]
  - White blood cells urine positive [Recovering/Resolving]
  - Blood pressure increased [Recovering/Resolving]
  - Cough [Recovering/Resolving]
  - Fatigue [Recovering/Resolving]
  - Lymphadenopathy [Recovering/Resolving]
  - Oedema peripheral [Recovering/Resolving]
  - Rash [Recovering/Resolving]
  - Treatment failure [Recovering/Resolving]
  - Intentional product use issue [Unknown]
